FAERS Safety Report 10897443 (Version 1)
Quarter: 2015Q1

REPORT INFORMATION
  Report Type: Spontaneous
  Country: US (occurrence: None)
  Receive Date: 20150302
  Receipt Date: 20150302
  Transmission Date: 20150721
  Serious: No
  Sender: FDA-Public Use
  Company Number: None

PATIENT
  Age: 67 Year
  Sex: Female

DRUGS (16)
  1. AVONEX [Concomitant]
     Active Substance: INTERFERON BETA-1A
  2. ONDANSETRON [Concomitant]
     Active Substance: ONDANSETRON
  3. PROAIR HFA [Concomitant]
     Active Substance: ALBUTEROL SULFATE
  4. CIPROFLOXACIN. [Concomitant]
     Active Substance: CIPROFLOXACIN
  5. GLIPIZIDE. [Concomitant]
     Active Substance: GLIPIZIDE
  6. BACLOFEN. [Concomitant]
     Active Substance: BACLOFEN
  7. LOSARTAN [Concomitant]
     Active Substance: LOSARTAN
  8. POTASSIUM CLORIDE [Concomitant]
  9. ZOCOR [Concomitant]
     Active Substance: SIMVASTATIN
  10. CEPHALEXIN. [Concomitant]
     Active Substance: CEPHALEXIN
  11. ALENDRONATE [Concomitant]
     Active Substance: ALENDRONATE SODIUM
  12. GALANTAMINE HYDROBROMIDE. [Concomitant]
     Active Substance: GALANTAMINE HYDROBROMIDE
  13. DICYCLOMINE [Concomitant]
     Active Substance: DICYCLOMINE HYDROCHLORIDE
  14. AMPYRA [Suspect]
     Active Substance: DALFAMPRIDINE
     Indication: MULTIPLE SCLEROSIS
     Route: 048
     Dates: start: 201312, end: 201403
  15. TROSPIUM [Concomitant]
     Active Substance: TROSPIUM
  16. TRAZODONE [Concomitant]
     Active Substance: TRAZODONE HYDROCHLORIDE

REACTIONS (2)
  - Drug ineffective [None]
  - Urinary tract infection [None]

NARRATIVE: CASE EVENT DATE: 20140812
